FAERS Safety Report 21698576 (Version 1)
Quarter: 2022Q4

REPORT INFORMATION
  Report Type: Spontaneous
  Country: CN (occurrence: CN)
  Receive Date: 20221208
  Receipt Date: 20221208
  Transmission Date: 20230112
  Serious: Yes (Other)
  Sender: FDA-Public Use
  Company Number: None

PATIENT
  Age: 58 Year
  Sex: Male
  Weight: 60 kg

DRUGS (9)
  1. CYCLOPHOSPHAMIDE [Suspect]
     Active Substance: CYCLOPHOSPHAMIDE
     Indication: Lymphoma
     Dosage: 0.8G, QD DILUTED WITH 500 ML NORMAL SALINE
     Route: 041
     Dates: start: 20221119, end: 20221119
  2. CYCLOPHOSPHAMIDE [Suspect]
     Active Substance: CYCLOPHOSPHAMIDE
     Indication: Chemotherapy
  3. SODIUM CHLORIDE [Suspect]
     Active Substance: SODIUM CHLORIDE
     Indication: Medication dilution
     Dosage: 500 ML, QD USED TO DILUTE 0.8G CYCLOPHOSPHAMIDE
     Route: 041
     Dates: start: 20221119, end: 20221119
  4. SODIUM CHLORIDE [Suspect]
     Active Substance: SODIUM CHLORIDE
     Dosage: 100 ML, QD USED TO DILUTE 80 MG DOXORUBICIN HYDROCHLORIDE
     Route: 041
     Dates: start: 20221119, end: 20221119
  5. SODIUM CHLORIDE [Suspect]
     Active Substance: SODIUM CHLORIDE
     Dosage: 100 ML, QD USED TO DILUTE 1 MG VINCRISTINE SULFATE
     Route: 041
     Dates: start: 20221119, end: 20221119
  6. DOXORUBICIN [Suspect]
     Active Substance: DOXORUBICIN
     Indication: Lymphoma
     Dosage: 80 MG, QD DILUTED WITH 100 ML NORMAL SALINE
     Route: 041
     Dates: start: 20221119, end: 20221119
  7. DOXORUBICIN [Suspect]
     Active Substance: DOXORUBICIN
     Indication: Chemotherapy
  8. VINCRISTINE SULFATE [Suspect]
     Active Substance: VINCRISTINE SULFATE
     Indication: Lymphoma
     Dosage: 1 MG, QD DILUTED WITH 100 ML NORMAL SALINE
     Route: 041
     Dates: start: 20221119, end: 20221119
  9. VINCRISTINE SULFATE [Suspect]
     Active Substance: VINCRISTINE SULFATE
     Indication: Chemotherapy

REACTIONS (1)
  - Myelosuppression [Unknown]

NARRATIVE: CASE EVENT DATE: 20221125
